FAERS Safety Report 5869136-2 (Version None)
Quarter: 2008Q3

REPORT INFORMATION
  Report Type: 
  Country: None (occurrence: None)
  Receive Date: 20080903
  Receipt Date: 20080829
  Transmission Date: 20090109
  Serious: Yes (Life-Threatening, Hospitalization)
  Sender: FDA-Public Use
  Company Number: US-WYE-H05822308

PATIENT
  Age: 58 Year
  Sex: Male

DRUGS (1)
  1. PRISTIQ [Suspect]
     Route: 048

REACTIONS (2)
  - ANGINA PECTORIS [None]
  - HYPERTENSION [None]
